FAERS Safety Report 6056351-0 (Version None)
Quarter: 2009Q1

REPORT INFORMATION
  Report Type: 
  Country: None (occurrence: None)
  Receive Date: 20090129
  Receipt Date: 20090120
  Transmission Date: 20090719
  Serious: Yes (Hospitalization, Other)
  Sender: FDA-Public Use
  Company Number: JP-BRISTOL-MYERS SQUIBB COMPANY-14482384

PATIENT
  Age: 7 Year
  Sex: Male

DRUGS (4)
  1. VEPESID [Suspect]
     Indication: ACUTE MYELOID LEUKAEMIA
     Dosage: FROM UNK-UNK FROM 02NOV1999-UNK:5DAYS
     Route: 041
  2. CYTARABINE [Suspect]
     Indication: ACUTE MYELOID LEUKAEMIA
     Dosage: UNK-UNK 02NOV1999/UNK
     Route: 042
  3. NOVANTRONE [Suspect]
     Indication: ACUTE MYELOID LEUKAEMIA
     Route: 042
  4. IDARUBICIN HCL [Suspect]
     Indication: ACUTE MYELOID LEUKAEMIA
     Route: 042

REACTIONS (1)
  - ACUTE RESPIRATORY DISTRESS SYNDROME [None]
